FAERS Safety Report 19245114 (Version 1)
Quarter: 2021Q2

REPORT INFORMATION
  Report Type: Spontaneous
  Country: US (occurrence: US)
  Receive Date: 20210512
  Receipt Date: 20210512
  Transmission Date: 20210717
  Serious: No
  Sender: FDA-Public Use
  Company Number: US-AUROBINDO-AUR-APL-2021-007617

PATIENT
  Age: 58 Year
  Sex: Female

DRUGS (2)
  1. KHAPZORY [Suspect]
     Active Substance: LEVOLEUCOVORIN DISODIUM
     Indication: COLON CANCER
     Dosage: UNK, THEN THE DOSE WAS DECREASED
     Route: 065
  2. KHAPZORY [Suspect]
     Active Substance: LEVOLEUCOVORIN DISODIUM
     Dosage: 60 MILLIGRAM, EVERY 2 WEEKS
     Route: 065

REACTIONS (1)
  - Product dose omission issue [Unknown]

NARRATIVE: CASE EVENT DATE: 20210217
